FAERS Safety Report 15106559 (Version 2)
Quarter: 2019Q2

REPORT INFORMATION
  Report Type: Spontaneous
  Country: US (occurrence: US)
  Receive Date: 20180704
  Receipt Date: 20190517
  Transmission Date: 20190711
  Serious: No
  Sender: FDA-Public Use
  Company Number: US-SA-2018SA167345

PATIENT
  Age: 53 Year
  Sex: Female

DRUGS (2)
  1. LANTUS [Suspect]
     Active Substance: INSULIN GLARGINE
     Indication: TYPE 1 DIABETES MELLITUS
     Dosage: 150 U, QD,3 YEARS AGO
     Route: 065
  2. INSULIN LISPRO [Suspect]
     Active Substance: INSULIN LISPRO
     Indication: TYPE 1 DIABETES MELLITUS
     Route: 065

REACTIONS (4)
  - Product storage error [Unknown]
  - Wrong product administered [Unknown]
  - Inappropriate schedule of product administration [Unknown]
  - Product dosage form confusion [Unknown]
